FAERS Safety Report 22339046 (Version 1)
Quarter: 2023Q2

REPORT INFORMATION
  Report Type: Report from Study
  Country: GT (occurrence: GT)
  Receive Date: 20230518
  Receipt Date: 20230518
  Transmission Date: 20230721
  Serious: Yes (Life-Threatening, Other)
  Sender: FDA-Public Use
  Company Number: GT-002147023-NVSC2023GT113546

PATIENT
  Sex: Female

DRUGS (1)
  1. EXFORGE [Suspect]
     Active Substance: AMLODIPINE BESYLATE\VALSARTAN
     Indication: Hypertension
     Dosage: UNK UNK, QD (10/320 MG)
     Route: 048
     Dates: start: 20230312, end: 20230426

REACTIONS (6)
  - Feeling abnormal [Unknown]
  - Pulmonary oedema [Not Recovered/Not Resolved]
  - Fluid retention [Not Recovered/Not Resolved]
  - Swelling [Unknown]
  - General physical health deterioration [Not Recovered/Not Resolved]
  - Product prescribing error [Not Recovered/Not Resolved]
